FAERS Safety Report 7824432-4 (Version None)
Quarter: 2011Q4

REPORT INFORMATION
  Report Type: 
  Country: None (occurrence: None)
  Receive Date: 20111019
  Receipt Date: 20111011
  Transmission Date: 20120403
  Serious: Yes (Hospitalization)
  Sender: FDA-Public Use
  Company Number: ES-JNJFOC-20111005616

PATIENT
  Age: 63 Year
  Sex: Male

DRUGS (3)
  1. SPORANOX [Suspect]
     Indication: PRODUCT USED FOR UNKNOWN INDICATION
     Route: 048
     Dates: start: 20110801, end: 20110801
  2. SIMVASTATINA [Concomitant]
     Indication: ILL-DEFINED DISORDER
     Route: 048
  3. ZOLPIDEM [Interacting]
     Indication: INSOMNIA
     Route: 048
     Dates: start: 20110325, end: 20110801

REACTIONS (2)
  - DRUG INTERACTION [None]
  - CONFUSIONAL STATE [None]
